FAERS Safety Report 10873221 (Version 3)
Quarter: 2015Q1

REPORT INFORMATION
  Report Type: Report from Study
  Country: DE (occurrence: DE)
  Receive Date: 20150227
  Receipt Date: 20150313
  Transmission Date: 20150721
  Serious: Yes (Hospitalization)
  Sender: FDA-Public Use
  Company Number: PHHO2015DE002755

PATIENT
  Age: 28 Year
  Sex: Female
  Weight: 126.8 kg

DRUGS (3)
  1. SOM230 [Suspect]
     Active Substance: PASIREOTIDE
     Dosage: 40 MG, UNK (LATEST)
     Route: 030
     Dates: start: 20150203
  2. SOM230 [Suspect]
     Active Substance: PASIREOTIDE
     Indication: DUMPING SYNDROME
     Dosage: 30 MG, UNK
     Route: 030
     Dates: start: 20140708, end: 20150202
  3. SOM230 [Suspect]
     Active Substance: PASIREOTIDE
     Indication: DUMPING SYNDROME
     Dosage: 150 UG, TID (MAX)
     Route: 065
     Dates: start: 20140415, end: 20140610

REACTIONS (3)
  - Paraesthesia [Recovering/Resolving]
  - Headache [Recovered/Resolved]
  - Visual field defect [Not Recovered/Not Resolved]

NARRATIVE: CASE EVENT DATE: 20150212
